FAERS Safety Report 11560483 (Version 1)
Quarter: 2015Q3

REPORT INFORMATION
  Report Type: Spontaneous
  Country: US (occurrence: US)
  Receive Date: 20150916
  Receipt Date: 20150916
  Transmission Date: 20151125
  Serious: No
  Sender: FDA-Public Use
  Company Number: US-ELI_LILLY_AND_COMPANY-US200809005855

PATIENT
  Age: 69 Year
  Sex: Female

DRUGS (14)
  1. IRON [Concomitant]
     Active Substance: IRON
     Indication: SUPPLEMENTATION THERAPY
  2. LIPITOR [Concomitant]
     Active Substance: ATORVASTATIN CALCIUM
     Indication: BLOOD CHOLESTEROL INCREASED
  3. DYNACIRC [Concomitant]
     Active Substance: ISRADIPINE
  4. PHOSLO [Concomitant]
     Active Substance: CALCIUM ACETATE
  5. ASPIRIN. [Concomitant]
     Active Substance: ASPIRIN
     Dosage: 81 MG, DAILY (1/D)
  6. DIOVAN [Concomitant]
     Active Substance: VALSARTAN
     Indication: BLOOD PRESSURE INCREASED
  7. HECTOROL [Concomitant]
     Active Substance: DOXERCALCIFEROL
  8. VITAMIN B COMPLEX [Concomitant]
     Active Substance: CYANOCOBALAMIN\DEXPANTHENOL\NIACINAMIDE\PYRIDOXINE HYDROCHLORIDE\RIBOFLAVIN 5^-PHOSPHATE SODIUM\THIAMINE HYDROCHLORIDE\VITAMIN B COMPLEX
  9. PROCRIT [Concomitant]
     Active Substance: ERYTHROPOIETIN
     Indication: BLOOD DISORDER
  10. ANAREX [Concomitant]
     Active Substance: ACETAMINOPHEN\ORPHENADRINE CITRATE
     Indication: PAIN
     Dosage: 1 D/F, EACH EVENING
  11. LASIX [Concomitant]
     Active Substance: FUROSEMIDE
     Dosage: 20 MG, UNK
  12. GLIPIZIDE XL [Concomitant]
     Active Substance: GLIPIZIDE
     Dosage: 5 MG, DAILY (1/D)
  13. ORPHENADRINE [Concomitant]
     Active Substance: ORPHENADRINE
     Indication: PAIN
     Dosage: 100 MG, EACH EVENING
  14. FORTEO [Suspect]
     Active Substance: TERIPARATIDE
     Indication: OSTEOPOROSIS
     Dosage: 20 UG, DAILY (1/D)

REACTIONS (1)
  - Fatigue [Recovered/Resolved]

NARRATIVE: CASE EVENT DATE: 200808
